FAERS Safety Report 5035696-7 (Version None)
Quarter: 2006Q2

REPORT INFORMATION
  Report Type: 
  Country: None (occurrence: None)
  Receive Date: 20060526
  Receipt Date: 20060404
  Transmission Date: 20061013
  Serious: No
  Sender: FDA-Public Use
  Company Number: 223793

PATIENT
  Age: 71 Year
  Sex: Female

DRUGS (1)
  1. RAPTIVA [Suspect]
     Indication: PSORIASIS
     Dosage: 91 MG, 1/WEEK,
     Dates: start: 20051121

REACTIONS (2)
  - BLOOD ALKALINE PHOSPHATASE INCREASED [None]
  - LYMPHOCYTE COUNT INCREASED [None]
